FAERS Safety Report 4711599-X (Version None)
Quarter: 2005Q3

REPORT INFORMATION
  Report Type: 
  Country: None (occurrence: None)
  Receive Date: 20050706
  Receipt Date: 20050523
  Transmission Date: 20060218
  Serious: No
  Sender: FDA-Public Use
  Company Number: US135240

PATIENT
  Age: 56 Year
  Sex: Male

DRUGS (9)
  1. SENSIPAR [Suspect]
     Indication: HYPERPARATHYROIDISM SECONDARY
     Dosage: 180 MG,  1 IN 1 DAYS, PO
     Route: 048
     Dates: start: 20040714
  2. DEXTRIFERRON [Concomitant]
  3. TUMS [Concomitant]
  4. DOXERCALCEROL [Concomitant]
  5. SEVELAMER HCL [Concomitant]
  6. ISOSORBIDE MONONITRATE [Concomitant]
  7. SIMVASTATIN [Concomitant]
  8. EZETIMIBE [Concomitant]
  9. LOPERAMIDE HYDROCHLORIDE [Concomitant]

REACTIONS (3)
  - ASTHENIA [None]
  - NAUSEA [None]
  - PAIN [None]
